FAERS Safety Report 21599174 (Version 2)
Quarter: 2022Q4

REPORT INFORMATION
  Report Type: Report from Study
  Country: US (occurrence: US)
  Receive Date: 20221115
  Receipt Date: 20221118
  Transmission Date: 20230113
  Serious: No
  Sender: FDA-Public Use
  Company Number: US-ABBVIE-4160082

PATIENT
  Sex: Male

DRUGS (5)
  1. HUMIRA [Suspect]
     Active Substance: ADALIMUMAB
     Indication: Colitis ulcerative
     Dosage: FORM STRENGTH: 40 MG
     Route: 058
  2. HUMIRA [Suspect]
     Active Substance: ADALIMUMAB
     Dosage: FORM STRENGTH: 40 MG
     Route: 058
  3. Moderna Covid-19 vaccination [Concomitant]
     Indication: COVID-19 immunisation
     Dosage: FIRST DOSE, FREQUENCY- ONE IN ONCE
     Route: 030
     Dates: start: 20210331, end: 20210331
  4. Moderna Covid-19 vaccination [Concomitant]
     Indication: COVID-19 immunisation
     Dosage: SECOND DOSE, FREQUENCY- ONE IN ONCE
     Route: 030
     Dates: start: 20210428, end: 20210428
  5. Moderna Covid-19 vaccination [Concomitant]
     Indication: COVID-19 immunisation
     Dosage: THIRD DOSE, BOOSTER, FREQUENCY- ONE IN ONCE
     Route: 030
     Dates: start: 20221007, end: 20221007

REACTIONS (7)
  - Dyspnoea [Unknown]
  - Device issue [Recovered/Resolved]
  - Fatigue [Not Recovered/Not Resolved]
  - Mucous stools [Not Recovered/Not Resolved]
  - Dyspepsia [Recovered/Resolved]
  - Injection site bruising [Unknown]
  - Haematochezia [Not Recovered/Not Resolved]

NARRATIVE: CASE EVENT DATE: 20190101
